FAERS Safety Report 13951030 (Version 1)
Quarter: 2017Q3

REPORT INFORMATION
  Report Type: Spontaneous
  Country: US (occurrence: US)
  Receive Date: 20170908
  Receipt Date: 20170908
  Transmission Date: 20171128
  Serious: Yes (Hospitalization)
  Sender: FDA-Public Use
  Company Number: US-PFIZER INC-2017382311

PATIENT
  Age: 66 Year
  Sex: Female
  Weight: 69.84 kg

DRUGS (15)
  1. MECLIZINE HCL [Suspect]
     Active Substance: MECLIZINE HYDROCHLORIDE
     Dosage: 12.5 MG, HALF TO ONE TABLET AS NEEDED
     Route: 048
     Dates: start: 20120131
  2. POTASSIUM CHLORIDE. [Suspect]
     Active Substance: POTASSIUM CHLORIDE
     Dosage: 20 MEQ, UNK
     Route: 048
     Dates: start: 20170712
  3. FIBER [Suspect]
     Active Substance: PSYLLIUM HUSK
     Dosage: UNK UNK, 1X/DAY
     Route: 048
     Dates: start: 20170418
  4. BYSTOLIC [Suspect]
     Active Substance: NEBIVOLOL HYDROCHLORIDE
     Dosage: 5 MG, 1X/DAY
     Route: 048
     Dates: start: 20170712
  5. FENTANYL. [Suspect]
     Active Substance: FENTANYL
     Dosage: 12 MCG/HOUR, 1 PATCH EVERY 72 HOURS
     Route: 062
     Dates: start: 20170712
  6. ADRIAMYCIN [Suspect]
     Active Substance: DOXORUBICIN HYDROCHLORIDE
     Indication: INFLAMMATORY CARCINOMA OF BREAST STAGE III
     Dosage: NEO-ADJUVANT CHEMOTHERAPY
     Dates: start: 20111212
  7. IBRANCE [Suspect]
     Active Substance: PALBOCICLIB
     Indication: INFLAMMATORY CARCINOMA OF BREAST STAGE III
     Dosage: 125 MG, DAILY ON DAYS 1 - 21 EVERY 28 DAYS
     Route: 048
     Dates: start: 20170713
  8. IBUPROFEN. [Suspect]
     Active Substance: IBUPROFEN
     Dosage: 200 MG 2 TABLETS AS NEEDED
     Route: 048
     Dates: start: 20170411
  9. TRETINOIN. [Suspect]
     Active Substance: TRETINOIN
     Dosage: EXTERNAL GEL TRETINOIN MICROSPHERE 0.04 PERCENT, ONCE DAILY
     Dates: start: 20150312
  10. DULOXETINE HCL [Suspect]
     Active Substance: DULOXETINE HYDROCHLORIDE
     Dosage: 20 MG, 1X/DAY
     Route: 048
     Dates: start: 20150903
  11. ARIMIDEX [Suspect]
     Active Substance: ANASTROZOLE
     Indication: INFLAMMATORY CARCINOMA OF BREAST STAGE III
     Dosage: 1 MG, DAILY
     Route: 048
     Dates: start: 20120803
  12. CYTOXAN [Suspect]
     Active Substance: CYCLOPHOSPHAMIDE
     Indication: INFLAMMATORY CARCINOMA OF BREAST STAGE III
     Dosage: NEO-ADJUVANT CHEMOTHERAPY
     Dates: start: 20111212
  13. ASPIRIN. [Suspect]
     Active Substance: ASPIRIN
     Dosage: 325 MG, AS NEEDED
     Route: 048
     Dates: start: 20151103
  14. TAXOL [Suspect]
     Active Substance: PACLITAXEL
     Indication: INFLAMMATORY CARCINOMA OF BREAST STAGE III
     Dosage: UNK
  15. HERCEPTIN [Suspect]
     Active Substance: TRASTUZUMAB
     Indication: INFLAMMATORY CARCINOMA OF BREAST STAGE III
     Dosage: UNK
     Dates: start: 20120207

REACTIONS (16)
  - Dyspnoea [Unknown]
  - Depression [Recovering/Resolving]
  - Nausea [Recovering/Resolving]
  - Cardiac tamponade [Recovering/Resolving]
  - Neoplasm recurrence [Recovering/Resolving]
  - Generalised anxiety disorder [Recovering/Resolving]
  - Malignant pleural effusion [Recovering/Resolving]
  - Haemorrhoids [Unknown]
  - Paratracheal lymphadenopathy [Recovering/Resolving]
  - Pericardial effusion malignant [Recovering/Resolving]
  - Oral herpes [Unknown]
  - Discomfort [Recovering/Resolving]
  - Varicella [Unknown]
  - Dysphonia [Recovering/Resolving]
  - Neoplasm progression [Recovering/Resolving]
  - Migraine [Unknown]

NARRATIVE: CASE EVENT DATE: 20170213
